FAERS Safety Report 16438051 (Version 1)
Quarter: 2019Q2

REPORT INFORMATION
  Report Type: Spontaneous
  Country: US (occurrence: US)
  Receive Date: 20190617
  Receipt Date: 20190617
  Transmission Date: 20190711
  Serious: No
  Sender: FDA-Public Use
  Company Number: US-ELI_LILLY_AND_COMPANY-US201906006706

PATIENT
  Sex: Female

DRUGS (2)
  1. HUMALOG KWIKPEN [Suspect]
     Active Substance: INSULIN LISPRO
     Dosage: 30 U, DAILY (23-30 UNITS DAILY)
     Route: 058
  2. HUMALOG KWIKPEN [Suspect]
     Active Substance: INSULIN LISPRO
     Indication: PRODUCT USED FOR UNKNOWN INDICATION
     Dosage: 30 U, DAILY (23-30 UNITS DAILY)
     Route: 058

REACTIONS (2)
  - Blood glucose increased [Not Recovered/Not Resolved]
  - Expired product administered [Recovered/Resolved]
